FAERS Safety Report 15641661 (Version 3)
Quarter: 2019Q1

REPORT INFORMATION
  Report Type: Report from Study
  Country: None (occurrence: US)
  Receive Date: 20181121
  Receipt Date: 20190307
  Transmission Date: 20190417
  Serious: Yes (Hospitalization)
  Sender: FDA-Public Use
  Company Number: US-ABBVIE-18K-163-2558087-00

PATIENT
  Age: 63 Year
  Sex: Female

DRUGS (2)
  1. HUMIRA [Suspect]
     Active Substance: ADALIMUMAB
     Indication: ANKYLOSING SPONDYLITIS
     Route: 058
     Dates: start: 20181101
  2. HUMIRA [Suspect]
     Active Substance: ADALIMUMAB
     Indication: UVEITIS

REACTIONS (11)
  - Joint range of motion decreased [Unknown]
  - Fatigue [Recovering/Resolving]
  - General physical health deterioration [Unknown]
  - Musculoskeletal stiffness [Recovering/Resolving]
  - Pain in extremity [Recovered/Resolved]
  - Injection site erythema [Recovered/Resolved]
  - Ocular discomfort [Unknown]
  - Fatigue [Recovered/Resolved]
  - Mobility decreased [Unknown]
  - Headache [Recovered/Resolved]
  - Pain [Recovering/Resolving]

NARRATIVE: CASE EVENT DATE: 2018
